FAERS Safety Report 6549994-9 (Version None)
Quarter: 2010Q1

REPORT INFORMATION
  Report Type: 
  Country: None (occurrence: None)
  Receive Date: 20100125
  Receipt Date: 20100119
  Transmission Date: 20100710
  Serious: Yes (Death)
  Sender: FDA-Public Use
  Company Number: US-ASTRAZENECA-2009SE23972

PATIENT
  Age: 15 Year
  Sex: Male
  Weight: 113.4 kg

DRUGS (2)
  1. SYMBICORT [Suspect]
     Indication: ASTHMA
     Dosage: 80/4.5 UG, 2 PUFFS
     Route: 055
     Dates: start: 20090825
  2. PROAIR HFA [Concomitant]
     Indication: ASTHMA
     Dosage: 2 PUFFS QID
     Route: 055
     Dates: start: 20090825

REACTIONS (1)
  - ASTHMA [None]
